FAERS Safety Report 5002944-9 (Version None)
Quarter: 2006Q2

REPORT INFORMATION
  Report Type: 
  Country: None (occurrence: None)
  Receive Date: 20060516
  Receipt Date: 20050907
  Transmission Date: 20061013
  Serious: Yes (Hospitalization, Disabling)
  Sender: FDA-Public Use
  Company Number: JP-JPN-A20052125

PATIENT
  Age: 57 Year
  Sex: Female
  Weight: 51 kg

DRUGS (8)
  1. PAXIL [Suspect]
     Indication: DEPRESSION
     Dosage: 10MG PER DAY
     Route: 048
     Dates: start: 20050323, end: 20050430
  2. THYRADIN S [Concomitant]
     Dosage: 50MCG PER DAY
     Route: 048
     Dates: end: 20050430
  3. ASPIRIN [Concomitant]
     Dosage: 3UNIT PER DAY
     Route: 048
     Dates: end: 20050430
  4. CONIEL [Concomitant]
     Dosage: 4MG PER DAY
     Route: 048
     Dates: end: 20050430
  5. MAINTATE [Concomitant]
     Dosage: 1TAB PER DAY
     Route: 048
     Dates: end: 20050430
  6. AROFUTO [Concomitant]
     Dosage: 2TAB PER DAY
     Route: 048
     Dates: end: 20050430
  7. NATRIX [Concomitant]
     Dosage: 1MG PER DAY
     Route: 048
     Dates: end: 20050430
  8. MAGNESIUM OXIDE [Concomitant]
     Route: 065

REACTIONS (6)
  - BALANCE DISORDER [None]
  - DIFFICULTY IN WALKING [None]
  - EYELID FUNCTION DISORDER [None]
  - HEPATIC FUNCTION ABNORMAL [None]
  - LAGOPHTHALMOS [None]
  - MALAISE [None]
